FAERS Safety Report 7131927-8 (Version None)
Quarter: 2010Q4

REPORT INFORMATION
  Report Type: 
  Country: None (occurrence: None)
  Receive Date: 20101202
  Receipt Date: 20101119
  Transmission Date: 20110411
  Serious: Yes (Other)
  Sender: FDA-Public Use
  Company Number: US-JNJFOC-20101108656

PATIENT
  Age: 37 Year
  Sex: Male

DRUGS (15)
  1. HALOPERIDOL [Suspect]
     Indication: PRODUCT USED FOR UNKNOWN INDICATION
     Route: 065
  2. CLOZAPINE [Suspect]
     Indication: SCHIZOPHRENIA
     Route: 065
  3. CLOZAPINE [Suspect]
     Route: 065
  4. CLOZAPINE [Suspect]
     Route: 065
  5. CLOZAPINE [Suspect]
     Route: 065
  6. FLUOXETINE [Suspect]
     Indication: PRODUCT USED FOR UNKNOWN INDICATION
     Route: 065
  7. CLONAZEPAM [Suspect]
     Indication: PRODUCT USED FOR UNKNOWN INDICATION
     Route: 065
  8. DISULFIRAM [Suspect]
     Indication: PRODUCT USED FOR UNKNOWN INDICATION
     Route: 065
  9. ESOMEPRAZOLE [Suspect]
     Indication: PRODUCT USED FOR UNKNOWN INDICATION
     Route: 065
  10. CLOMIPRAMINE HCL [Suspect]
     Indication: PRODUCT USED FOR UNKNOWN INDICATION
     Route: 065
  11. BENZTROPINE MESYLATE [Suspect]
     Indication: PRODUCT USED FOR UNKNOWN INDICATION
     Route: 065
  12. TRAZODONE [Suspect]
     Indication: ILL-DEFINED DISORDER
     Route: 065
  13. ZOLPIDEM [Suspect]
     Indication: ILL-DEFINED DISORDER
     Route: 065
  14. DONEPEZIL HCL [Suspect]
     Indication: ILL-DEFINED DISORDER
     Route: 065
  15. LANSOPRAZOLE [Suspect]
     Indication: PRODUCT USED FOR UNKNOWN INDICATION
     Route: 065

REACTIONS (5)
  - INFLUENZA LIKE ILLNESS [None]
  - LEUKOCYTOSIS [None]
  - RHABDOMYOLYSIS [None]
  - SINOBRONCHITIS [None]
  - UPPER RESPIRATORY TRACT INFECTION [None]
